FAERS Safety Report 13711191 (Version 2)
Quarter: 2017Q4

REPORT INFORMATION
  Report Type: Spontaneous
  Country: US (occurrence: US)
  Receive Date: 20170703
  Receipt Date: 20171005
  Transmission Date: 20180320
  Serious: Yes (Other)
  Sender: FDA-Public Use
  Company Number: US-BAYER-2017-124993

PATIENT
  Age: 35 Year
  Sex: Female
  Weight: 86.62 kg

DRUGS (1)
  1. SKYLA [Suspect]
     Active Substance: LEVONORGESTREL
     Indication: CONTRACEPTION
     Dosage: 14 MCG/24HR, CONT
     Route: 015
     Dates: start: 20160907, end: 20170502

REACTIONS (3)
  - Pregnancy with contraceptive device [None]
  - Drug ineffective [None]
  - Device expulsion [None]

NARRATIVE: CASE EVENT DATE: 20170123
